FAERS Safety Report 16933226 (Version 4)
Quarter: 2020Q1

REPORT INFORMATION
  Report Type: Spontaneous
  Country: ES (occurrence: ES)
  Receive Date: 20191018
  Receipt Date: 20200128
  Transmission Date: 20200409
  Serious: Yes (Life-Threatening, Hospitalization)
  Sender: FDA-Public Use
  Company Number: ES-SUN PHARMACEUTICAL INDUSTRIES LTD-2019RR-223842

PATIENT
  Age: 17 Year
  Sex: Female

DRUGS (2)
  1. PARACETAMOL [Suspect]
     Active Substance: ACETAMINOPHEN
     Indication: PRODUCT USED FOR UNKNOWN INDICATION
     Dosage: 27 GRAMS, IN TOTAL
     Route: 048
     Dates: start: 20190803, end: 20190803
  2. MELATONINA (90496A) [Concomitant]
     Active Substance: MELATONIN
     Indication: PRODUCT USED FOR UNKNOWN INDICATION
     Dosage: 6 GTT, IN TOTAL
     Route: 048
     Dates: start: 20190803, end: 20190803

REACTIONS (4)
  - Hepatitis [Recovered/Resolved]
  - Hyperbilirubinaemia [Recovered/Resolved]
  - Coagulopathy [Recovered/Resolved]
  - Suicide attempt [Unknown]

NARRATIVE: CASE EVENT DATE: 20190803
